FAERS Safety Report 11590516 (Version 1)
Quarter: 2015Q4

REPORT INFORMATION
  Report Type: Spontaneous
  Country: US (occurrence: US)
  Receive Date: 20151002
  Receipt Date: 20151002
  Transmission Date: 20160304
  Serious: Yes (Hospitalization)
  Sender: FDA-Public Use
  Company Number: PHHY2015US116489

PATIENT
  Age: 18 Year
  Sex: Male

DRUGS (4)
  1. CLOZAPINE. [Suspect]
     Active Substance: CLOZAPINE
     Indication: BIPOLAR DISORDER
     Dosage: 25 MG, BID
     Route: 065
  2. LORAZEPAM. [Suspect]
     Active Substance: LORAZEPAM
     Indication: PRODUCT USED FOR UNKNOWN INDICATION
     Dosage: 26 MG, UNK
     Route: 065
  3. PHENOBARBITAL. [Suspect]
     Active Substance: PHENOBARBITAL
     Indication: PRODUCT USED FOR UNKNOWN INDICATION
     Dosage: 97.2 MG, UNK
     Route: 065
  4. PROPOFOL. [Suspect]
     Active Substance: PROPOFOL
     Indication: PRODUCT USED FOR UNKNOWN INDICATION
     Route: 065

REACTIONS (17)
  - Tachycardia [Recovering/Resolving]
  - Agitation [Recovering/Resolving]
  - Hypertriglyceridaemia [Unknown]
  - Delirium [Recovering/Resolving]
  - Mania [Recovering/Resolving]
  - Posture abnormal [Recovering/Resolving]
  - Stupor [Recovering/Resolving]
  - Disorientation [Recovering/Resolving]
  - Neuroleptic malignant syndrome [Recovering/Resolving]
  - Catatonia [Recovering/Resolving]
  - Muscle rigidity [Recovering/Resolving]
  - Aggression [Recovering/Resolving]
  - Condition aggravated [Recovering/Resolving]
  - Toxicity to various agents [Unknown]
  - Chromaturia [Unknown]
  - Therapeutic response decreased [Unknown]
  - Psychomotor hyperactivity [Recovering/Resolving]
